FAERS Safety Report 18997989 (Version 1)
Quarter: 2021Q1

REPORT INFORMATION
  Report Type: Spontaneous
  Country: FR (occurrence: FR)
  Receive Date: 20210311
  Receipt Date: 20210311
  Transmission Date: 20210420
  Serious: Yes (Hospitalization, Other)
  Sender: FDA-Public Use
  Company Number: NVSC2021FR052975

PATIENT
  Age: 31 Year
  Sex: Male

DRUGS (21)
  1. LETERMOVIR [Concomitant]
     Active Substance: LETERMOVIR
     Indication: ANTIVIRAL PROPHYLAXIS
     Dosage: 250 MG, QD
     Route: 048
     Dates: start: 20200423
  2. CELLCEPT [Concomitant]
     Active Substance: MYCOPHENOLATE MOFETIL\MYCOPHENOLATE MOFETIL HYDROCHLORIDE
     Indication: PRODUCT USED FOR UNKNOWN INDICATION
     Dosage: 2 DF (1 G), QD
     Route: 042
     Dates: start: 20200215, end: 20200304
  3. SOLU?MEDROL [Concomitant]
     Active Substance: METHYLPREDNISOLONE SODIUM SUCCINATE
     Dosage: 80 MG, QD
     Route: 065
     Dates: start: 20200304, end: 20200304
  4. HYDROCORTISONE. [Concomitant]
     Active Substance: HYDROCORTISONE
     Dosage: 20 MG, QD
     Route: 065
     Dates: start: 20200417, end: 20200423
  5. NEORAL [Suspect]
     Active Substance: CYCLOSPORINE
     Dosage: 2 DF (170 MG), QD
     Route: 048
     Dates: start: 20200328, end: 20200409
  6. CELLCEPT [Concomitant]
     Active Substance: MYCOPHENOLATE MOFETIL\MYCOPHENOLATE MOFETIL HYDROCHLORIDE
     Dosage: 2 DF (500 MG), QD
     Route: 048
     Dates: start: 20200327, end: 20200402
  7. NEORAL [Suspect]
     Active Substance: CYCLOSPORINE
     Indication: GRAFT VERSUS HOST DISEASE
     Dosage: 180 MG, QD
     Route: 042
     Dates: start: 20200215, end: 20200219
  8. NEORAL [Suspect]
     Active Substance: CYCLOSPORINE
     Dosage: 180 MG, QD
     Route: 042
     Dates: start: 20200223, end: 20200301
  9. NEORAL [Suspect]
     Active Substance: CYCLOSPORINE
     Dosage: 150 MG, QD
     Route: 042
     Dates: start: 20200302, end: 20200303
  10. CELLCEPT [Concomitant]
     Active Substance: MYCOPHENOLATE MOFETIL\MYCOPHENOLATE MOFETIL HYDROCHLORIDE
     Dosage: 2 DF (1 G), QD
     Route: 048
     Dates: start: 20200305, end: 20200318
  11. NEORAL [Suspect]
     Active Substance: CYCLOSPORINE
     Dosage: 160 MG, QD
     Route: 042
     Dates: start: 20200222, end: 20200223
  12. NEORAL [Suspect]
     Active Substance: CYCLOSPORINE
     Dosage: 2 DF (150 MG), QD
     Route: 048
     Dates: start: 20200410, end: 20200512
  13. SOLU?MEDROL [Concomitant]
     Active Substance: METHYLPREDNISOLONE SODIUM SUCCINATE
     Dosage: 60 MG, QD
     Route: 065
     Dates: start: 20200305, end: 20200306
  14. NEORAL [Suspect]
     Active Substance: CYCLOSPORINE
     Dosage: 2 DF (150 MG), QD
     Route: 048
     Dates: start: 20200304, end: 20200327
  15. SOLU?MEDROL [Concomitant]
     Active Substance: METHYLPREDNISOLONE SODIUM SUCCINATE
     Indication: PRODUCT USED FOR UNKNOWN INDICATION
     Dosage: 120 MG, QD
     Route: 065
     Dates: start: 20200227, end: 20200301
  16. SOLU?MEDROL [Concomitant]
     Active Substance: METHYLPREDNISOLONE SODIUM SUCCINATE
     Dosage: 100 MG, QD
     Route: 065
     Dates: start: 20200302, end: 20200303
  17. NEORAL [Suspect]
     Active Substance: CYCLOSPORINE
     Dosage: 150 MG, QD
     Route: 042
     Dates: start: 20200220, end: 20200221
  18. NEORAL [Suspect]
     Active Substance: CYCLOSPORINE
     Dosage: 2 DF (150 MG), QD
     Route: 048
     Dates: start: 20200517
  19. CELLCEPT [Concomitant]
     Active Substance: MYCOPHENOLATE MOFETIL\MYCOPHENOLATE MOFETIL HYDROCHLORIDE
     Dosage: 2 DF (500 MG), QD
     Route: 048
     Dates: start: 20200319, end: 20200326
  20. HYDROCORTISONE. [Concomitant]
     Active Substance: HYDROCORTISONE
     Indication: PRODUCT USED FOR UNKNOWN INDICATION
     Dosage: 30 MG, QD
     Route: 065
     Dates: start: 20200410, end: 20200416
  21. HYDROCORTISONE. [Concomitant]
     Active Substance: HYDROCORTISONE
     Dosage: 10 MG, QD
     Route: 065
     Dates: start: 20200424, end: 20200430

REACTIONS (5)
  - Nausea [Recovering/Resolving]
  - Decreased appetite [Recovering/Resolving]
  - Acute kidney injury [Recovering/Resolving]
  - Graft versus host disease [Unknown]
  - Diarrhoea [Recovering/Resolving]

NARRATIVE: CASE EVENT DATE: 20200513
